FAERS Safety Report 17292425 (Version 1)
Quarter: 2020Q1

REPORT INFORMATION
  Report Type: Spontaneous
  Country: US (occurrence: US)
  Receive Date: 20200121
  Receipt Date: 20200121
  Transmission Date: 20200409
  Serious: Yes (Other)
  Sender: FDA-Public Use
  Company Number: US-BAYER-2019-231908

PATIENT
  Sex: Female

DRUGS (2)
  1. MIRENA [Suspect]
     Active Substance: LEVONORGESTREL
  2. MIRENA [Suspect]
     Active Substance: LEVONORGESTREL
     Indication: ENDOMETRIOSIS
     Dosage: UNK
     Route: 015
     Dates: start: 201911

REACTIONS (4)
  - Procedural haemorrhage [Recovered/Resolved]
  - Off label use of device [None]
  - Menorrhagia [None]
  - Device use issue [None]

NARRATIVE: CASE EVENT DATE: 201911
